FAERS Safety Report 19156116 (Version 1)
Quarter: 2021Q2

REPORT INFORMATION
  Report Type: Other
  Country: US (occurrence: US)
  Receive Date: 20210419
  Receipt Date: 20210419
  Transmission Date: 20210717
  Serious: Yes (Hospitalization)
  Sender: FDA-Public Use
  Company Number: US-INTERCEPT-PM2021001230

PATIENT
  Age: 66 Year
  Sex: Female

DRUGS (3)
  1. URSO [Concomitant]
     Active Substance: URSODIOL
     Dosage: 1000 UNK, QD
  2. OCALIVA [Suspect]
     Active Substance: OBETICHOLIC ACID
     Indication: PRIMARY BILIARY CHOLANGITIS
     Dosage: UNK
     Route: 048
     Dates: start: 2018
  3. URSO [Concomitant]
     Active Substance: URSODIOL
     Dosage: 625 UNK, TID

REACTIONS (6)
  - Sepsis [Recovered/Resolved]
  - Arthritis [Unknown]
  - Asthenia [Unknown]
  - Dysphagia [Unknown]
  - Fatigue [Recovered/Resolved]
  - Headache [Unknown]

NARRATIVE: CASE EVENT DATE: 2019
